FAERS Safety Report 25108938 (Version 1)
Quarter: 2025Q1

REPORT INFORMATION
  Report Type: Spontaneous
  Country: IN (occurrence: IN)
  Receive Date: 20250322
  Receipt Date: 20250322
  Transmission Date: 20250409
  Serious: Yes (Other)
  Sender: TORRENT PHARMA INC.
  Company Number: IN-TORRENT-00003916

PATIENT
  Age: 54 Year
  Sex: Male

DRUGS (1)
  1. AMLODIPINE [Suspect]
     Active Substance: AMLODIPINE BESYLATE
     Indication: Product used for unknown indication
     Route: 065

REACTIONS (2)
  - Gingival hypertrophy [Recovered/Resolved]
  - Periodontitis [Recovered/Resolved]
